FAERS Safety Report 5206336-9 (Version None)
Quarter: 2006Q4

REPORT INFORMATION
  Report Type: 
  Country: None (occurrence: None)
  Receive Date: 20061026
  Receipt Date: 20060727
  Transmission Date: 20070319
  Serious: Yes (Other)
  Sender: FDA-Public Use
  Company Number: 2006092327

PATIENT
  Age: 85 Year
  Sex: Female
  Weight: 83.9154 kg

DRUGS (9)
  1. LYRICA [Suspect]
     Indication: NEURALGIA
     Dosage: 300 MG (150 MG, 2 IN 1 D), UNKNOWN
     Dates: start: 20060701
  2. ZOLOFT [Concomitant]
  3. CELEBREX [Concomitant]
  4. MS CONTIN [Concomitant]
  5. ACTOS [Concomitant]
  6. LASIX [Concomitant]
  7. LISINOPRIL [Concomitant]
  8. MULTIVITAMIN [Concomitant]
  9. MILK OF MAGNESIA TAB [Concomitant]

REACTIONS (1)
  - AMNESIA [None]
